FAERS Safety Report 16933958 (Version 2)
Quarter: 2019Q4

REPORT INFORMATION
  Report Type: Spontaneous
  Country: US (occurrence: US)
  Receive Date: 20191018
  Receipt Date: 20191025
  Transmission Date: 20200122
  Serious: Yes (Other)
  Sender: FDA-Public Use
  Company Number: US-CIPLA LTD.-2019US06881

PATIENT

DRUGS (6)
  1. XANAX [Concomitant]
     Active Substance: ALPRAZOLAM
     Indication: ANXIETY
  2. GABAPENTIN. [Suspect]
     Active Substance: GABAPENTIN
     Indication: ANXIETY
     Dosage: 100 MILLIGRAM, BID
     Route: 048
     Dates: start: 20190927, end: 20190927
  3. XANAX [Concomitant]
     Active Substance: ALPRAZOLAM
     Indication: PANIC ATTACK
     Dosage: 0.25 MILLIGRAM, PRN, AS NEEDED THREE TIMES A DAY
     Route: 065
     Dates: start: 201806
  4. GABAPENTIN. [Suspect]
     Active Substance: GABAPENTIN
     Indication: NEURALGIA
     Dosage: 100 MILLIGRAM, TID
     Route: 048
     Dates: start: 20190928, end: 20190929
  5. GABAPENTIN. [Suspect]
     Active Substance: GABAPENTIN
     Dosage: UNK
     Route: 048
     Dates: start: 20191005, end: 201910
  6. GABAPENTIN. [Suspect]
     Active Substance: GABAPENTIN
     Indication: PANIC ATTACK
     Dosage: 100 MILLIGRAM, TID, AS A BEDTIME DOSE
     Route: 048
     Dates: start: 20190926, end: 20190926

REACTIONS (9)
  - Product use in unapproved indication [Unknown]
  - Gastroenteritis viral [Recovered/Resolved]
  - Hypersensitivity [Recovering/Resolving]
  - Wheezing [Recovered/Resolved]
  - Off label use [Unknown]
  - Pyrexia [Recovered/Resolved]
  - Unevaluable event [Recovered/Resolved]
  - Malaise [Recovering/Resolving]
  - Choking [Recovered/Resolved]

NARRATIVE: CASE EVENT DATE: 20190926
